FAERS Safety Report 5707936-X (Version None)
Quarter: 2008Q2

REPORT INFORMATION
  Report Type: 
  Country: None (occurrence: None)
  Receive Date: 20080417
  Receipt Date: 20080411
  Transmission Date: 20081010
  Serious: Yes (Other)
  Sender: FDA-Public Use
  Company Number: PHRM2008FR00908

PATIENT
  Age: 40 Year
  Sex: Male
  Weight: 66 kg

DRUGS (4)
  1. NEORAL [Suspect]
     Indication: HEART TRANSPLANT
     Dosage: 50 MG MORNING 75 MG EVENING
     Route: 048
     Dates: start: 20040727
  2. CERTICAN [Suspect]
     Indication: HEART TRANSPLANT
     Dosage: 0.75 MG, BID
     Route: 048
  3. PREDNISONE [Suspect]
     Indication: HEART TRANSPLANT
     Dosage: 10 MG, QD
     Route: 048
  4. ATORVASTATIN CALCIUM [Concomitant]

REACTIONS (3)
  - ACNE [None]
  - DERMAL CYST [None]
  - SKIN PAPILLOMA [None]
